FAERS Safety Report 20903257 (Version 3)
Quarter: 2025Q1

REPORT INFORMATION
  Report Type: Spontaneous
  Country: US (occurrence: US)
  Receive Date: 20220601
  Receipt Date: 20250325
  Transmission Date: 20250409
  Serious: Yes (Other)
  Sender: BIOMARIN
  Company Number: US-BIOMARINAP-US-2022-143499

PATIENT

DRUGS (1)
  1. PALYNZIQ [Suspect]
     Active Substance: PEGVALIASE-PQPZ
     Indication: Product used for unknown indication
     Route: 058
     Dates: start: 202205, end: 202205

REACTIONS (11)
  - Anaphylactic reaction [Unknown]
  - Drug hypersensitivity [Unknown]
  - Pyrexia [Unknown]
  - Injection site erythema [Unknown]
  - Injection site swelling [Unknown]
  - Chills [Unknown]
  - Injection site induration [Unknown]
  - Injection site pain [Unknown]
  - Injection site discolouration [Unknown]
  - Nausea [Unknown]
  - Headache [Unknown]

NARRATIVE: CASE EVENT DATE: 20220518
